FAERS Safety Report 7624182-3 (Version None)
Quarter: 2011Q3

REPORT INFORMATION
  Report Type: 
  Country: None (occurrence: None)
  Receive Date: 20110720
  Receipt Date: 20110720
  Transmission Date: 20111222
  Serious: Yes (Other)
  Sender: FDA-Public Use
  Company Number: None

PATIENT
  Age: 58 Year
  Sex: Male
  Weight: 75.749 kg

DRUGS (1)
  1. LEVOFLOXACIN [Suspect]
     Indication: PNEUMONIA
     Dosage: 750 MG.
     Route: 048
     Dates: start: 20100725, end: 20100729

REACTIONS (2)
  - MUSCULAR WEAKNESS [None]
  - COORDINATION ABNORMAL [None]
